FAERS Safety Report 6387318-0 (Version None)
Quarter: 2009Q3

REPORT INFORMATION
  Report Type: 
  Country: None (occurrence: None)
  Receive Date: 20090930
  Receipt Date: 20090914
  Transmission Date: 20100115
  Serious: Yes (Death, Hospitalization)
  Sender: FDA-Public Use
  Company Number: 2009AL002557

PATIENT
  Sex: Female

DRUGS (18)
  1. DIGOXIN [Suspect]
     Dosage: 0.125 MG. Q MORNING
     Dates: start: 20050501
  2. DIGOXIN [Suspect]
     Dosage: 0.0.25 MG . Q EVENING
  3. DEPO-MEDROL [Concomitant]
  4. MARCAINE [Concomitant]
  5. ALLOPURINOL [Concomitant]
  6. ALTACE [Concomitant]
  7. DIOVAN [Concomitant]
  8. MAGNESIUM OXIDE [Concomitant]
  9. LASIX [Concomitant]
  10. PROTONIX [Concomitant]
  11. WELLBURTIN [Concomitant]
  12. BIDIL [Concomitant]
  13. TOPROL-XL [Concomitant]
  14. ASPIRIN [Concomitant]
  15. KEFLEX [Concomitant]
  16. URELLE [Concomitant]
  17. INSULIN [Concomitant]
  18. . [Concomitant]

REACTIONS (8)
  - CALCULUS URETERIC [None]
  - ECONOMIC PROBLEM [None]
  - MENISCUS LESION [None]
  - MULTIPLE INJURIES [None]
  - PULMONARY GRANULOMA [None]
  - SURGERY [None]
  - UNEVALUABLE EVENT [None]
  - URETHRAL MEATUS STENOSIS [None]
